FAERS Safety Report 25948052 (Version 1)
Quarter: 2025Q4

REPORT INFORMATION
  Report Type: Spontaneous
  Country: US (occurrence: None)
  Receive Date: 20251022
  Receipt Date: 20251022
  Transmission Date: 20260117
  Serious: Yes (Hospitalization)
  Sender: FDA-CTU
  Company Number: None

PATIENT
  Age: 65 Year
  Sex: Female
  Weight: 53 kg

DRUGS (3)
  1. DARATUMUMAB\HYALURONIDASE-FIHJ [Suspect]
     Active Substance: DARATUMUMAB\HYALURONIDASE-FIHJ
     Dates: end: 20251008
  2. LENALIDOMIDE [Suspect]
     Active Substance: LENALIDOMIDE
     Dates: end: 20251009
  3. VELCADE [Suspect]
     Active Substance: BORTEZOMIB
     Dates: end: 20251009

REACTIONS (7)
  - Pyrexia [None]
  - Infusion related reaction [None]
  - Heart rate increased [None]
  - Therapy interrupted [None]
  - Musculoskeletal stiffness [None]
  - Herpes zoster [None]
  - Neck pain [None]

NARRATIVE: CASE EVENT DATE: 20251010
